FAERS Safety Report 19428080 (Version 1)
Quarter: 2021Q2

REPORT INFORMATION
  Report Type: Spontaneous
  Country: US (occurrence: US)
  Receive Date: 20210616
  Receipt Date: 20210616
  Transmission Date: 20210717
  Serious: Yes (Hospitalization)
  Sender: FDA-Public Use
  Company Number: None

PATIENT
  Sex: Female

DRUGS (8)
  1. POT CHLORIDE [Concomitant]
     Active Substance: POTASSIUM CHLORIDE
  2. AFINITOR [Suspect]
     Active Substance: EVEROLIMUS
     Indication: BREAST CANCER FEMALE
     Route: 048
     Dates: start: 20210416
  3. TEMAZEPAM. [Concomitant]
     Active Substance: TEMAZEPAM
  4. DEXAMETHASONE. [Concomitant]
     Active Substance: DEXAMETHASONE
  5. EXEMESTANE. [Concomitant]
     Active Substance: EXEMESTANE
  6. LEVITIRACETA [Concomitant]
  7. ONDANSETRON [Concomitant]
     Active Substance: ONDANSETRON
  8. SERTRALINE [Concomitant]
     Active Substance: SERTRALINE HYDROCHLORIDE

REACTIONS (1)
  - Hospitalisation [None]
